FAERS Safety Report 6795004-8 (Version None)
Quarter: 2010Q2

REPORT INFORMATION
  Report Type: 
  Country: None (occurrence: None)
  Receive Date: 20100625
  Receipt Date: 20090801
  Transmission Date: 20101027
  Serious: Yes (Life-Threatening, Hospitalization)
  Sender: FDA-Public Use
  Company Number: FR-ROCHE-571532

PATIENT
  Sex: Male

DRUGS (5)
  1. GANCICLOVIR [Suspect]
     Indication: DRUG USE FOR UNKNOWN INDICATION
     Dosage: TDD: 300 MGX2
     Route: 065
     Dates: start: 20080516, end: 20080518
  2. MYCOPHENOLATE MOFETIL [Suspect]
     Dosage: UNIT REPORTED AS : G, TEMPORARILY INTERRUPTED.
     Route: 048
     Dates: start: 20080517, end: 20080519
  3. MYCOPHENOLATE MOFETIL [Suspect]
     Route: 048
     Dates: start: 20080523
  4. MYCOPHENOLATE MOFETIL [Suspect]
     Route: 048
     Dates: start: 20080912
  5. TACROLIMUS [Concomitant]
     Dates: start: 20080516

REACTIONS (4)
  - AGRANULOCYTOSIS [None]
  - BILIARY DRAINAGE [None]
  - COMPLICATIONS OF TRANSPLANTED LIVER [None]
  - RENAL FAILURE ACUTE [None]
